FAERS Safety Report 7732926-5 (Version None)
Quarter: 2011Q3

REPORT INFORMATION
  Report Type: 
  Country: None (occurrence: None)
  Receive Date: 20110907
  Receipt Date: 20110831
  Transmission Date: 20111222
  Serious: Yes (Other)
  Sender: FDA-Public Use
  Company Number: BR-PFIZER INC-2011204449

PATIENT
  Age: 71 Year
  Sex: Female
  Weight: 75.9 kg

DRUGS (7)
  1. SUTENT [Suspect]
     Dosage: 50 MG, ALTERNATE DAY
     Route: 048
     Dates: start: 20100805
  2. PROPRANOLOL [Concomitant]
     Dosage: 40 MG, 1X/DAY
     Route: 048
  3. METHYLDOPA [Concomitant]
     Dosage: 250 MG, 2X/DAY
     Route: 048
  4. METOCLOPRAMIDE [Concomitant]
     Dosage: 10 MG, 4X/DAY
     Route: 048
     Dates: start: 20100709
  5. CODEINE PHOSPHATE AND ACETAMINOPHEN [Concomitant]
     Dosage: 500MG / 30MG, EVERY 6 HOURS
     Dates: start: 20100709
  6. SUTENT [Suspect]
     Indication: RENAL CELL CARCINOMA
     Dosage: 50 MG, 1X/DAY
     Route: 048
     Dates: start: 20100709, end: 20100805
  7. OMEPRAZOLE [Concomitant]
     Dosage: 20 MG, 2X/DAY
     Route: 048

REACTIONS (3)
  - GLOSSODYNIA [None]
  - MUSCULOSKELETAL PAIN [None]
  - PLATELET COUNT DECREASED [None]
